FAERS Safety Report 4842563-8 (Version None)
Quarter: 2005Q4

REPORT INFORMATION
  Report Type: 
  Country: None (occurrence: None)
  Receive Date: 20051129
  Receipt Date: 20051122
  Transmission Date: 20060501
  Serious: Yes (Death)
  Sender: FDA-Public Use
  Company Number: 163-20785-05110088

PATIENT
  Age: 71 Year
  Sex: Male

DRUGS (11)
  1. THALOMID [Suspect]
     Indication: MULTIPLE MYELOMA
     Dosage: 100 MG, DAILY, ORAL
     Route: 048
     Dates: start: 20050508, end: 20051031
  2. ATENOLOL [Concomitant]
  3. DIGOXIN [Concomitant]
  4. ZANTAC [Concomitant]
  5. MIRALAX [Concomitant]
  6. TRAVATAN [Concomitant]
  7. COUMADIN [Concomitant]
  8. SSKI (POTASSIUM IODIDE) [Concomitant]
  9. DEXAMETHSONE (DEXAMETHASONE) [Concomitant]
  10. OXYGEN (OXYGEN) [Concomitant]
  11. NEURONTIN [Concomitant]

REACTIONS (1)
  - THYMOMA MALIGNANT [None]
